FAERS Safety Report 10055027 (Version 1)
Quarter: 2014Q2

REPORT INFORMATION
  Report Type: Spontaneous
  Country: US (occurrence: US)
  Receive Date: 20140402
  Receipt Date: 20140402
  Transmission Date: 20141212
  Serious: No
  Sender: FDA-Public Use
  Company Number: US-SA-2014SA028419

PATIENT
  Sex: Female

DRUGS (8)
  1. AUBAGIO [Suspect]
     Indication: MULTIPLE SCLEROSIS
     Route: 048
     Dates: start: 20130905
  2. BACLOFEN [Concomitant]
     Indication: MUSCLE SPASMS
     Route: 048
     Dates: start: 20100402
  3. DETROL [Concomitant]
     Indication: NEUROGENIC BLADDER
     Route: 048
     Dates: start: 20100402
  4. SERTRALINE HYDROCHLORIDE [Concomitant]
     Indication: DEPRESSION
     Route: 048
     Dates: start: 20100402
  5. VYTORIN [Concomitant]
     Indication: HYPERLIPIDAEMIA
     Dosage: DOSE: 10- 20 MG
     Route: 048
     Dates: start: 20100402
  6. STRATTERA [Concomitant]
     Indication: FATIGUE
     Route: 048
     Dates: start: 20100402
  7. VITAMIN D3 [Concomitant]
     Indication: VITAMIN D DEFICIENCY
     Route: 048
     Dates: start: 20100402
  8. CALCIUM [Concomitant]
     Indication: PROPHYLAXIS
     Route: 048
     Dates: start: 20100402

REACTIONS (2)
  - Breast enlargement [Unknown]
  - Alopecia [Unknown]
